FAERS Safety Report 9784322 (Version 1)
Quarter: 2013Q4

REPORT INFORMATION
  Report Type: Spontaneous
  Country: US (occurrence: US)
  Receive Date: 20131226
  Receipt Date: 20131226
  Transmission Date: 20140711
  Serious: No
  Sender: FDA-Public Use
  Company Number: US-BIOGENIDEC-2013BI122683

PATIENT
  Sex: Female

DRUGS (13)
  1. TECFIDERA [Suspect]
     Indication: MULTIPLE SCLEROSIS
     Route: 048
     Dates: start: 20130918
  2. ADVAIR [Concomitant]
  3. FLONASE [Concomitant]
  4. KLONOPIN [Concomitant]
  5. NAPROSYN [Concomitant]
  6. NAPROSYN [Concomitant]
  7. PAMELOR [Concomitant]
  8. PROVENTIL HFA [Concomitant]
  9. REQUIP [Concomitant]
  10. SINGULAIR [Concomitant]
  11. SYNTHROID [Concomitant]
  12. ZANAFLEX [Concomitant]
  13. ZOFRAN [Concomitant]

REACTIONS (1)
  - Neutropenia [Unknown]
